FAERS Safety Report 7077143-X (Version None)
Quarter: 2010Q4

REPORT INFORMATION
  Report Type: 
  Country: None (occurrence: None)
  Receive Date: 20101101
  Receipt Date: 20101026
  Transmission Date: 20110411
  Serious: Yes (Hospitalization)
  Sender: FDA-Public Use
  Company Number: A0888788A

PATIENT
  Age: 65 Year
  Sex: Female

DRUGS (10)
  1. ADVAIR DISKUS 100/50 [Suspect]
     Indication: ASTHMA
     Dosage: 1PUFF TWICE PER DAY
     Route: 055
     Dates: start: 20100805, end: 20100805
  2. CRESTOR [Concomitant]
  3. ZETIA [Concomitant]
  4. INSULIN [Concomitant]
  5. DIOVAN [Concomitant]
  6. ASPIRIN [Concomitant]
  7. SYNTHROID [Concomitant]
  8. AMLODIPINE [Concomitant]
  9. METOPROLOL [Concomitant]
  10. PLAVIX [Concomitant]

REACTIONS (5)
  - ARTERIAL OCCLUSIVE DISEASE [None]
  - CHEST PAIN [None]
  - ERYTHEMA [None]
  - PAIN IN EXTREMITY [None]
  - RASH [None]
